FAERS Safety Report 7809815 (Version 8)
Quarter: 2014Q1

REPORT INFORMATION
  Report Type: Spontaneous
  Country: US (occurrence: US)
  Receive Date: 20110211
  Receipt Date: 20140102
  Transmission Date: 20141002
  Serious: Yes (Other)
  Sender: FDA-Public Use
  Company Number: US-ASTRAZENECA-2010SE56707

PATIENT
  Age: 55 Year
  Sex: Female
  Weight: 72.6 kg

DRUGS (13)
  1. NEXIUM [Suspect]
     Indication: GASTROOESOPHAGEAL REFLUX DISEASE
     Route: 048
  2. SEROQUEL [Suspect]
     Indication: INSOMNIA
     Route: 048
     Dates: start: 2009
  3. SEROQUEL [Suspect]
     Indication: SLEEP DISORDER
     Route: 048
     Dates: start: 2009
  4. SEROQUEL [Suspect]
     Indication: INSOMNIA
     Route: 048
     Dates: start: 2010
  5. SEROQUEL [Suspect]
     Indication: SLEEP DISORDER
     Route: 048
     Dates: start: 2010
  6. SEROQUEL [Suspect]
     Indication: INSOMNIA
     Route: 048
  7. SEROQUEL [Suspect]
     Indication: SLEEP DISORDER
     Route: 048
  8. SEROQUEL [Suspect]
     Indication: INSOMNIA
     Route: 048
     Dates: start: 2006
  9. SEROQUEL [Suspect]
     Indication: SLEEP DISORDER
     Route: 048
     Dates: start: 2006
  10. ADVAIR [Concomitant]
  11. DEPAKOTE [Concomitant]
  12. ACYCLOVIR [Concomitant]
     Indication: HERPES VIRUS INFECTION
  13. OTHERS [Concomitant]

REACTIONS (13)
  - Lung neoplasm malignant [Unknown]
  - Ocular neoplasm [Unknown]
  - Throat cancer [Unknown]
  - Suicidal ideation [Unknown]
  - Nervousness [Not Recovered/Not Resolved]
  - Medical device pain [Unknown]
  - Chronic obstructive pulmonary disease [Unknown]
  - Weight increased [Unknown]
  - Herpes virus infection [Unknown]
  - Insomnia [Unknown]
  - Malaise [Unknown]
  - Off label use [Unknown]
  - Drug dose omission [Unknown]
